FAERS Safety Report 8624021-8 (Version None)
Quarter: 2012Q3

REPORT INFORMATION
  Report Type: 
  Country: None (occurrence: None)
  Receive Date: 20120827
  Receipt Date: 20120817
  Transmission Date: 20120928
  Serious: Yes (Other)
  Sender: FDA-Public Use
  Company Number: US-ASTRAZENECA-2012SE55119

PATIENT
  Age: 67 Year
  Sex: Female
  Weight: 49.9 kg

DRUGS (4)
  1. MIRTAZAPINE [Concomitant]
  2. ALPRAZOLAM [Concomitant]
  3. GABAPENTIN [Concomitant]
  4. SEROQUEL XR [Suspect]
     Indication: SLEEP DISORDER
     Route: 048

REACTIONS (8)
  - INFECTION [None]
  - ACCIDENT [None]
  - MENIERE'S DISEASE [None]
  - HYPERVENTILATION [None]
  - ADVERSE EVENT [None]
  - PYREXIA [None]
  - THERAPEUTIC RESPONSE UNEXPECTED [None]
  - INTENTIONAL DRUG MISUSE [None]
